FAERS Safety Report 12143324 (Version 1)
Quarter: 2016Q1

REPORT INFORMATION
  Report Type: Report from Study
  Country: MY (occurrence: MY)
  Receive Date: 20160304
  Receipt Date: 20160304
  Transmission Date: 20160526
  Serious: Yes (Hospitalization)
  Sender: FDA-Public Use
  Company Number: MY-BIOGEN-2015BI134531

PATIENT
  Age: 28 Year
  Sex: Female
  Weight: 59 kg

DRUGS (8)
  1. MYCOPHENOLATE MOFETIL. [Concomitant]
     Active Substance: MYCOPHENOLATE MOFETIL
     Dates: start: 20140813, end: 20141006
  2. MYCOPHENOLATE MOFETIL. [Concomitant]
     Active Substance: MYCOPHENOLATE MOFETIL
     Dates: start: 20150323, end: 20150519
  3. ONEALFA [Concomitant]
     Active Substance: ALFACALCIDOL
     Indication: OSTEOPOROSIS PROPHYLAXIS
     Dates: start: 20110414
  4. PREDNISOLONE. [Concomitant]
     Active Substance: PREDNISOLONE
     Indication: SYSTEMIC LUPUS ERYTHEMATOSUS
     Dates: start: 20150713
  5. MYCOPHENOLATE MOFETIL. [Concomitant]
     Active Substance: MYCOPHENOLATE MOFETIL
     Dates: start: 20141007, end: 20150322
  6. MYCOPHENOLATE MOFETIL. [Concomitant]
     Active Substance: MYCOPHENOLATE MOFETIL
     Indication: LUPUS NEPHRITIS
     Dates: start: 20140710, end: 20140812
  7. OMEPRAZOLE. [Concomitant]
     Active Substance: OMEPRAZOLE
     Indication: GASTRITIS
     Dates: start: 20131125, end: 20141003
  8. BIIB023 [Suspect]
     Active Substance: INVESTIGATIONAL PRODUCT
     Indication: LUPUS NEPHRITIS
     Route: 042
     Dates: start: 20140710, end: 20151005

REACTIONS (14)
  - Red blood cell count increased [None]
  - Lymphocyte count decreased [None]
  - Alanine aminotransferase increased [None]
  - Haemoglobin decreased [None]
  - Eosinophil count decreased [None]
  - Mean cell volume abnormal [None]
  - Neutrophil count increased [None]
  - Aspartate aminotransferase increased [None]
  - Mean cell haemoglobin decreased [None]
  - Mean cell haemoglobin concentration decreased [None]
  - Red cell distribution width increased [None]
  - Hepatic enzyme abnormal [Recovered/Resolved]
  - Gamma-glutamyltransferase increased [None]
  - Blood alkaline phosphatase increased [None]

NARRATIVE: CASE EVENT DATE: 20150929
